FAERS Safety Report 22143139 (Version 2)
Quarter: 2023Q4

REPORT INFORMATION
  Report Type: Spontaneous
  Country: CN (occurrence: CN)
  Receive Date: 20230327
  Receipt Date: 20231006
  Transmission Date: 20240110
  Serious: Yes (Life-Threatening)
  Sender: FDA-Public Use
  Company Number: CN-BAYER-2023A040155

PATIENT
  Age: 45 Year
  Sex: Female
  Weight: 60 kg

DRUGS (1)
  1. ULTRAVIST [Suspect]
     Active Substance: IOPROMIDE
     Indication: Computerised tomogram abdomen
     Dosage: 80 ML, ONCE
     Route: 042
     Dates: start: 20230318, end: 20230318

REACTIONS (4)
  - Anaphylactic shock [Recovering/Resolving]
  - Palpitations [Recovering/Resolving]
  - Hypoaesthesia [None]
  - Rash [Recovered/Resolved]

NARRATIVE: CASE EVENT DATE: 20230318
